FAERS Safety Report 8325976 (Version 2)
Quarter: 2013Q1

REPORT INFORMATION
  Report Type: Spontaneous
  Country: FR (occurrence: FR)
  Receive Date: 20120106
  Receipt Date: 20130212
  Transmission Date: 20140127
  Serious: Yes (Death)
  Sender: FDA-Public Use
  Company Number: FR-EISAI INC-E7273-00287-SPO-FR

PATIENT
  Age: 69 Year
  Sex: Male
  Weight: 43 kg

DRUGS (8)
  1. TARGRETIN CAPSULES [Suspect]
     Indication: MYCOSIS FUNGOIDES
     Route: 048
     Dates: start: 201111, end: 20111205
  2. ROFERON [Suspect]
     Indication: MYCOSIS FUNGOIDES
     Dosage: 300 MUI
     Route: 065
     Dates: start: 201111
  3. EMEND [Suspect]
     Indication: VOMITING
     Route: 065
     Dates: start: 201109
  4. LEVOTHYROX [Concomitant]
     Route: 048
  5. LAROXYL [Concomitant]
     Dosage: 10 DROPS
     Route: 048
  6. LEXOMIL [Concomitant]
     Dosage: UNKNOWN
     Route: 065
  7. XERIAL 50 [Concomitant]
     Dosage: UNKNOWN
  8. DEXERYL [Concomitant]
     Dosage: UNKNOWN

REACTIONS (1)
  - Dehydration [Fatal]
